FAERS Safety Report 8555409-1 (Version None)
Quarter: 2012Q3

REPORT INFORMATION
  Report Type: 
  Country: None (occurrence: None)
  Receive Date: 20120731
  Receipt Date: 20120120
  Transmission Date: 20120928
  Serious: No
  Sender: FDA-Public Use
  Company Number: US-ASTRAZENECA-2011SE25257

PATIENT
  Age: 59 Year
  Sex: Female

DRUGS (5)
  1. SEROQUEL [Suspect]
     Indication: BIPOLAR DISORDER
     Route: 048
     Dates: start: 20090401, end: 20110424
  2. SEROQUEL [Suspect]
     Dosage: IN THE MORNING
     Route: 048
     Dates: start: 20110428
  3. SEROQUEL [Suspect]
     Route: 048
  4. PAXIL [Concomitant]
  5. CLONAZEPAM [Concomitant]

REACTIONS (10)
  - ADVERSE DRUG REACTION [None]
  - ACTIVITIES OF DAILY LIVING IMPAIRED [None]
  - DRUG DOSE OMISSION [None]
  - HALLUCINATION, VISUAL [None]
  - ANXIETY [None]
  - TREMOR [None]
  - SOMNOLENCE [None]
  - DYSARTHRIA [None]
  - NAUSEA [None]
  - INSOMNIA [None]
